FAERS Safety Report 8101306-5 (Version None)
Quarter: 2012Q1

REPORT INFORMATION
  Report Type: 
  Country: None (occurrence: None)
  Receive Date: 20120131
  Receipt Date: 20120126
  Transmission Date: 20120608
  Serious: Yes (Other)
  Sender: FDA-Public Use
  Company Number: BR-PFIZER INC-2011286261

PATIENT
  Age: 54 Year
  Sex: Female
  Weight: 68 kg

DRUGS (2)
  1. VARENICLINE TARTRATE [Suspect]
     Indication: SMOKING CESSATION THERAPY
     Dosage: UNK
     Route: 048
     Dates: start: 20111026, end: 20110101
  2. VARENICLINE TARTRATE [Suspect]
     Dosage: 0.5 MG, EVERY 12 HOURS
     Route: 048
     Dates: start: 20110101

REACTIONS (7)
  - LABYRINTHITIS [None]
  - WEIGHT INCREASED [None]
  - HEADACHE [None]
  - FEELING ABNORMAL [None]
  - DIZZINESS [None]
  - NAUSEA [None]
  - BLOOD PRESSURE INCREASED [None]
